FAERS Safety Report 17969186 (Version 2)
Quarter: 2020Q3

REPORT INFORMATION
  Report Type: Spontaneous
  Country: US (occurrence: US)
  Receive Date: 20200701
  Receipt Date: 20200706
  Transmission Date: 20201103
  Serious: Yes (Hospitalization)
  Sender: FDA-Public Use
  Company Number: US-PFM-2020-01492

PATIENT
  Sex: Female
  Weight: 7.26 kg

DRUGS (2)
  1. HEMANGEOL [Suspect]
     Active Substance: PROPRANOLOL HYDROCHLORIDE
     Dosage: 2.9 ML, BID (2/DAY)
     Route: 065
  2. HEMANGEOL [Suspect]
     Active Substance: PROPRANOLOL HYDROCHLORIDE
     Indication: INFANTILE HAEMANGIOMA
     Dosage: 2.1 ML, BID (2/DAY)
     Route: 065

REACTIONS (2)
  - Urinary tract infection [Unknown]
  - Ear infection [Unknown]
